FAERS Safety Report 4748433-8 (Version None)
Quarter: 2005Q3

REPORT INFORMATION
  Report Type: 
  Country: None (occurrence: None)
  Receive Date: 20050817
  Receipt Date: 20050811
  Transmission Date: 20060218
  Serious: Yes (Other)
  Sender: FDA-Public Use
  Company Number: S05-USA-03905-01

PATIENT
  Age: 49 Year
  Sex: Female

DRUGS (4)
  1. LEXAPRO [Suspect]
     Indication: ANXIETY
     Dosage: 10 MG QHS PO
     Route: 048
     Dates: start: 20050718, end: 20050804
  2. LEXAPRO [Suspect]
     Indication: DEPRESSION
     Dosage: 10 MG QHS PO
     Route: 048
     Dates: start: 20050718, end: 20050804
  3. ZONEGRAN [Concomitant]
  4. PHENOBARBITAL TAB [Concomitant]

REACTIONS (1)
  - PETIT MAL EPILEPSY [None]
